FAERS Safety Report 4590591-2 (Version None)
Quarter: 2005Q1

REPORT INFORMATION
  Report Type: 
  Country: None (occurrence: None)
  Receive Date: 20050224
  Receipt Date: 20050214
  Transmission Date: 20050727
  Serious: Yes (Other)
  Sender: FDA-Public Use
  Company Number: NZ-GLAXOSMITHKLINE-B0372473A

PATIENT
  Sex: Male

DRUGS (2)
  1. AUGMENTIN '125' [Suspect]
     Indication: LARYNGITIS
     Dosage: 2TAB PER DAY
     Route: 048
     Dates: start: 20050210
  2. ALLOPURINOL [Concomitant]
     Indication: GOUT
     Dosage: 300MG PER DAY

REACTIONS (8)
  - ANAPHYLACTIC REACTION [None]
  - ASTHENIA [None]
  - DIARRHOEA [None]
  - HEADACHE [None]
  - LIP PAIN [None]
  - MOVEMENT DISORDER [None]
  - THROAT TIGHTNESS [None]
  - WHEEZING [None]
